FAERS Safety Report 17794980 (Version 1)
Quarter: 2020Q2

REPORT INFORMATION
  Report Type: Spontaneous
  Country: MP (occurrence: US)
  Receive Date: 20200515
  Receipt Date: 20200515
  Transmission Date: 20200714
  Serious: Yes (Other)
  Sender: FDA-Public Use
  Company Number: MP-PRINSTON PHARMACEUTICAL INC.-2020PRN00169

PATIENT
  Age: 68 Year

DRUGS (1)
  1. IRBESARTAN. [Suspect]
     Active Substance: IRBESARTAN
     Dosage: UNK
     Dates: start: 2013, end: 201903

REACTIONS (4)
  - Emotional distress [Unknown]
  - Recalled product administered [Recovered/Resolved]
  - Performance status decreased [Unknown]
  - Non-Hodgkin^s lymphoma [Unknown]
